FAERS Safety Report 6685917-X (Version None)
Quarter: 2010Q2

REPORT INFORMATION
  Report Type: 
  Country: None (occurrence: None)
  Receive Date: 20100419
  Receipt Date: 20100319
  Transmission Date: 20101027
  Serious: No
  Sender: FDA-Public Use
  Company Number: US-BAYER-201013409BCC

PATIENT
  Age: 74 Year
  Sex: Male
  Weight: 101 kg

DRUGS (12)
  1. ALEVE (CAPLET) [Suspect]
     Indication: ARTHRALGIA
     Dosage: TOTAL DAILY DOSE: 880 MG  UNIT DOSE: 220 MG
     Route: 048
     Dates: start: 20100101
  2. RANITIDINE HCL [Concomitant]
  3. GLIPIZIDE [Concomitant]
  4. ACTOS [Concomitant]
  5. PLAVIX [Concomitant]
  6. BROLOTART [Concomitant]
  7. SIMVASTATIN [Concomitant]
  8. METFORMIN HCL [Concomitant]
  9. AMLODIPINE [Concomitant]
  10. ISOSORBIDE MONONITRATE [Concomitant]
  11. METOPROLOL TART [Concomitant]
  12. OBTEROLTART [Concomitant]
     Route: 065

REACTIONS (1)
  - ARTHRALGIA [None]
